FAERS Safety Report 5378188-8 (Version None)
Quarter: 2007Q3

REPORT INFORMATION
  Report Type: 
  Country: None (occurrence: None)
  Receive Date: 20070705
  Receipt Date: 20070625
  Transmission Date: 20080115
  Serious: Yes (Other)
  Sender: FDA-Public Use
  Company Number: US-JNJFOC-20070605155

PATIENT
  Sex: Male
  Weight: 90.72 kg

DRUGS (2)
  1. LEVAQUIN [Suspect]
     Indication: PHARYNGOLARYNGEAL PAIN
     Route: 048
  2. PRINIVIL [Concomitant]
     Indication: HYPERTENSION
     Route: 065

REACTIONS (11)
  - ANOREXIA [None]
  - ANXIETY [None]
  - DIZZINESS [None]
  - FEELING OF BODY TEMPERATURE CHANGE [None]
  - HEADACHE [None]
  - HYPERACUSIS [None]
  - HYPOAESTHESIA [None]
  - NAUSEA [None]
  - PAIN IN JAW [None]
  - PHOTOPHOBIA [None]
  - THIRST [None]
